FAERS Safety Report 9323301 (Version 1)
Quarter: 2013Q2

REPORT INFORMATION
  Report Type: Report from Study
  Country: US (occurrence: US)
  Receive Date: 20130603
  Receipt Date: 20130603
  Transmission Date: 20140414
  Serious: Yes (Other)
  Sender: FDA-Public Use
  Company Number: US-PFIZER INC-2013163140

PATIENT
  Age: 56 Year
  Sex: Female

DRUGS (4)
  1. DOXORUBICIN HCL [Suspect]
     Indication: INVASIVE DUCTAL BREAST CARCINOMA
     Dosage: 60 MG/M2, EVERY 2-WEEK SAME DOSES AS EVERY 3 WEEKLY SCHEDULE
  2. CYCLOPHOSPHAMIDE [Suspect]
     Indication: INVASIVE DUCTAL BREAST CARCINOMA
     Dosage: 600 MG/M2, EVERY 2-WEEK SAME DOSES AS EVERY 3 WEEKLY SCHEDULE
  3. DOCETAXEL [Suspect]
     Indication: INVASIVE DUCTAL BREAST CARCINOMA
     Dosage: 100 MG/M2 (BSA=1.89 M2) (3-WEEKLY)
  4. PEGFILGRASTIM [Concomitant]
     Indication: INVASIVE DUCTAL BREAST CARCINOMA
     Dosage: UNK
     Route: 042

REACTIONS (1)
  - Palmar-plantar erythrodysaesthesia syndrome [Recovering/Resolving]
